FAERS Safety Report 9155724 (Version 21)
Quarter: 2014Q2

REPORT INFORMATION
  Report Type: Report from Study
  Country: AL (occurrence: AL)
  Receive Date: 20130311
  Receipt Date: 20140516
  Transmission Date: 20141212
  Serious: Yes (Life-Threatening)
  Sender: FDA-Public Use
  Company Number: AL-ROCHE-1199164

PATIENT
  Age: 59 Year
  Sex: Male
  Weight: 70.5 kg

DRUGS (1)
  1. VEMURAFENIB [Suspect]
     Indication: MALIGNANT MELANOMA
     Dosage: LAST DOSE PRIOR TO SAE:23/DEC/2012
     Route: 048
     Dates: start: 20120607, end: 20121224

REACTIONS (1)
  - Cerebral haematoma [Recovered/Resolved with Sequelae]
